FAERS Safety Report 11409065 (Version 1)
Quarter: 2015Q3

REPORT INFORMATION
  Report Type: Spontaneous
  Country: JP (occurrence: JP)
  Receive Date: 20150824
  Receipt Date: 20150824
  Transmission Date: 20151125
  Serious: Yes (Death, Other)
  Sender: FDA-Public Use
  Company Number: PHHY2015JP100519

PATIENT
  Age: 67 Year
  Sex: Female

DRUGS (2)
  1. METHOTREXATE [Suspect]
     Active Substance: METHOTREXATE
     Indication: SJOGREN^S SYNDROME
  2. METHOTREXATE [Suspect]
     Active Substance: METHOTREXATE
     Indication: RHEUMATOID ARTHRITIS
     Dosage: 6.0 MG, QW
     Route: 065

REACTIONS (3)
  - Epstein-Barr virus infection [Unknown]
  - Diffuse large B-cell lymphoma [Unknown]
  - Lymphoproliferative disorder [Fatal]
